FAERS Safety Report 10185626 (Version 1)
Quarter: 2014Q2

REPORT INFORMATION
  Report Type: Spontaneous
  Country: AT (occurrence: AT)
  Receive Date: 20140521
  Receipt Date: 20140521
  Transmission Date: 20141212
  Serious: Yes (Other)
  Sender: FDA-Public Use
  Company Number: AT-ACCORD-023759

PATIENT
  Age: 88 Year
  Sex: Female
  Weight: 53 kg

DRUGS (6)
  1. AMLODIPINE [Suspect]
     Indication: PRODUCT USED FOR UNKNOWN INDICATION
  2. NEBIVOLOL/NEBIVOLOL HYDROCHLORIDE [Concomitant]
     Indication: PRODUCT USED FOR UNKNOWN INDICATION
  3. DIGITOXIN [Concomitant]
     Indication: PRODUCT USED FOR UNKNOWN INDICATION
  4. VALPROIC ACID [Interacting]
     Indication: STATUS EPILEPTICUS
  5. MIRTAZAPINE [Interacting]
     Indication: PRODUCT USED FOR UNKNOWN INDICATION
  6. GLICLAZIDE [Concomitant]
     Indication: PRODUCT USED FOR UNKNOWN INDICATION

REACTIONS (5)
  - Coagulation time prolonged [Recovered/Resolved]
  - Drug interaction [Unknown]
  - Anticonvulsant drug level above therapeutic [None]
  - Drug level fluctuating [None]
  - Anticonvulsant drug level decreased [None]
